FAERS Safety Report 7713637-9 (Version None)
Quarter: 2011Q3

REPORT INFORMATION
  Report Type: 
  Country: None (occurrence: None)
  Receive Date: 20110826
  Receipt Date: 20110818
  Transmission Date: 20111222
  Serious: Yes (Hospitalization, Other)
  Sender: FDA-Public Use
  Company Number: PHHY2011GB54312

PATIENT
  Age: 55 Year
  Sex: Male

DRUGS (7)
  1. ALLOPURINOL [Concomitant]
     Dosage: 300 MG, QD
     Route: 048
  2. ALBUTEROL [Concomitant]
     Dosage: 2 DF, UNK
  3. ESLICARBAZEPINE [Suspect]
     Indication: EPILEPSY
     Dosage: 800 MG, QD
     Route: 048
     Dates: start: 20110505
  4. FLUTICASONE PROPIONATE [Concomitant]
     Dosage: 2 DF, UNK
  5. MIRTAZAPINE [Suspect]
     Indication: DEPRESSION
     Dosage: 15 MG, QD
     Route: 048
     Dates: start: 20110424
  6. CITALOPRAM [Concomitant]
     Dosage: 10 MG, QD
     Route: 048
  7. KEPPRA [Concomitant]
     Dosage: 1250 MG, BID
     Route: 048

REACTIONS (6)
  - PALPITATIONS [None]
  - CIRCULATORY COLLAPSE [None]
  - DYSPNOEA [None]
  - ORTHOSTATIC HYPOTENSION [None]
  - DIZZINESS [None]
  - SYNCOPE [None]
